FAERS Safety Report 9197859 (Version 1)
Quarter: 2013Q1

REPORT INFORMATION
  Report Type: Spontaneous
  Country: DK (occurrence: NO)
  Receive Date: 20130328
  Receipt Date: 20130328
  Transmission Date: 20140127
  Serious: Yes (Life-Threatening, Disabling)
  Sender: FDA-Public Use
  Company Number: NO-FRI-1000043809

PATIENT
  Sex: Female

DRUGS (3)
  1. ESCITALOPRAM [Suspect]
     Indication: DEPRESSION
     Dosage: 10 MG
     Dates: start: 201111
  2. ESCITALOPRAM [Suspect]
     Dosage: 20 MG
  3. ESCITALOPRAM [Suspect]
     Dosage: 10 MG
     Dates: end: 201206

REACTIONS (14)
  - General physical health deterioration [Not Recovered/Not Resolved]
  - Visual impairment [Recovering/Resolving]
  - Gingival bleeding [Recovering/Resolving]
  - Blister [Recovered/Resolved]
  - Rash vesicular [Recovered/Resolved]
  - Weight increased [Not Recovered/Not Resolved]
  - Rash [Not Recovered/Not Resolved]
  - Swelling [Recovering/Resolving]
  - Fatigue [Not Recovered/Not Resolved]
  - Serotonin syndrome [Recovering/Resolving]
  - Oropharyngeal plaque [Recovered/Resolved]
  - Skin haemorrhage [Recovered/Resolved]
  - Pyrexia [Recovered/Resolved]
  - Headache [Recovering/Resolving]
